FAERS Safety Report 6268577-1 (Version None)
Quarter: 2009Q3

REPORT INFORMATION
  Report Type: 
  Country: None (occurrence: None)
  Receive Date: 20090715
  Receipt Date: 20090602
  Transmission Date: 20100115
  Serious: No
  Sender: FDA-Public Use
  Company Number: US-BAYER-200912216NA

PATIENT
  Age: 68 Year
  Sex: Female
  Weight: 52 kg

DRUGS (1)
  1. CLIMARA PRO [Suspect]
     Indication: MENOPAUSAL SYMPTOMS
     Dosage: 0.045/0.015MG
     Route: 062

REACTIONS (4)
  - APPLICATION SITE IRRITATION [None]
  - APPLICATION SITE RASH [None]
  - HOT FLUSH [None]
  - WEIGHT DECREASED [None]
